FAERS Safety Report 7960530-2 (Version None)
Quarter: 2011Q4

REPORT INFORMATION
  Report Type: 
  Country: None (occurrence: None)
  Receive Date: 20111206
  Receipt Date: 20111201
  Transmission Date: 20120403
  Serious: Yes (Other)
  Sender: FDA-Public Use
  Company Number: CA-ABBOTT-11P-028-0879830-00

PATIENT
  Sex: Male
  Weight: 71 kg

DRUGS (2)
  1. HUMIRA [Suspect]
     Indication: CROHN'S DISEASE
     Route: 058
     Dates: start: 20111028
  2. CORTISONE ACETATE [Concomitant]
     Indication: CROHN'S DISEASE
     Route: 058
     Dates: start: 20111119

REACTIONS (2)
  - RASH MACULAR [None]
  - INFLAMMATION [None]
